FAERS Safety Report 13085007 (Version 1)
Quarter: 2017Q1

REPORT INFORMATION
  Report Type: Spontaneous
  Country: TW (occurrence: TW)
  Receive Date: 20170104
  Receipt Date: 20170104
  Transmission Date: 20170428
  Serious: Yes (Other)
  Sender: FDA-Public Use
  Company Number: TW-ABBVIE-17P-153-1828151-00

PATIENT
  Age: 56 Year
  Sex: Male

DRUGS (13)
  1. VALPROIC ACID. [Suspect]
     Active Substance: VALPROIC ACID
     Indication: BIPOLAR DISORDER
     Route: 065
     Dates: start: 20160830
  2. LITHIUM. [Interacting]
     Active Substance: LITHIUM
     Indication: BIPOLAR DISORDER
     Route: 065
  3. LITHIUM. [Interacting]
     Active Substance: LITHIUM
     Indication: PSYCHOTIC BEHAVIOUR
  4. CLOZAPINE. [Interacting]
     Active Substance: CLOZAPINE
     Indication: BIPOLAR DISORDER
     Route: 065
     Dates: start: 20110509
  5. LORAZEPAM. [Interacting]
     Active Substance: LORAZEPAM
     Indication: PSYCHOTIC BEHAVIOUR
     Dosage: AT BED TIME
     Route: 065
  6. LORAZEPAM. [Interacting]
     Active Substance: LORAZEPAM
     Indication: INSOMNIA
  7. VALPROIC ACID. [Interacting]
     Active Substance: VALPROIC ACID
     Indication: PSYCHOTIC BEHAVIOUR
     Route: 065
  8. LORAZEPAM. [Interacting]
     Active Substance: LORAZEPAM
     Indication: BIPOLAR DISORDER
  9. CLOZAPINE. [Interacting]
     Active Substance: CLOZAPINE
     Indication: PSYCHOTIC BEHAVIOUR
     Route: 065
     Dates: start: 20130830
  10. FLURAZEPAM [Interacting]
     Active Substance: FLURAZEPAM\FLURAZEPAM HYDROCHLORIDE
     Indication: BIPOLAR DISORDER
     Route: 065
  11. LITHIUM. [Interacting]
     Active Substance: LITHIUM
     Indication: INSOMNIA
  12. FLURAZEPAM [Interacting]
     Active Substance: FLURAZEPAM\FLURAZEPAM HYDROCHLORIDE
     Indication: INSOMNIA
  13. CLOZAPINE. [Interacting]
     Active Substance: CLOZAPINE
     Indication: INSOMNIA
     Route: 065

REACTIONS (6)
  - Labelled drug-drug interaction medication error [Unknown]
  - White blood cell count increased [Unknown]
  - Pneumonia aspiration [Unknown]
  - Aspartate aminotransferase increased [Unknown]
  - Pyrexia [Unknown]
  - Product use issue [Unknown]
